FAERS Safety Report 8091685-X (Version None)
Quarter: 2012Q1

REPORT INFORMATION
  Report Type: 
  Country: None (occurrence: None)
  Receive Date: 20120130
  Receipt Date: 20120130
  Transmission Date: 20120608
  Serious: Yes (Life-Threatening, Hospitalization)
  Sender: FDA-Public Use
  Company Number: None

PATIENT
  Sex: Female
  Weight: 97 kg

DRUGS (8)
  1. LEXAPRO [Concomitant]
  2. TRADJENTA [Suspect]
     Dosage: 5MG QD ORAL
     Route: 048
     Dates: end: 20120125
  3. RISPERDAL [Concomitant]
  4. NAMENDA [Concomitant]
  5. LEVOTHYROXINE SODIUM [Concomitant]
  6. LOTREL [Concomitant]
  7. HYDROCHLOROTHIAZIDE [Concomitant]
  8. METOPROLOL TARTRATE [Concomitant]

REACTIONS (10)
  - PANCREATITIS ACUTE [None]
  - DIARRHOEA [None]
  - VOMITING [None]
  - HYPERGLYCAEMIA [None]
  - LUNG CONSOLIDATION [None]
  - ACIDOSIS [None]
  - PLEURAL EFFUSION [None]
  - CHOLELITHIASIS [None]
  - RENAL FAILURE [None]
  - ASCITES [None]
